FAERS Safety Report 9455392 (Version 1)
Quarter: 2013Q3

REPORT INFORMATION
  Report Type: Spontaneous
  Country: JP (occurrence: JP)
  Receive Date: 20130813
  Receipt Date: 20130813
  Transmission Date: 20140515
  Serious: Yes (Life-Threatening, Other)
  Sender: FDA-Public Use
  Company Number: PHHY2013JP086418

PATIENT
  Age: 88 Year
  Sex: Female

DRUGS (1)
  1. DIOVAN [Suspect]
     Dosage: UNK UKN, UNK
     Route: 048

REACTIONS (5)
  - Pulmonary embolism [Unknown]
  - Face oedema [Unknown]
  - Pyrexia [Unknown]
  - Erythema multiforme [Unknown]
  - Pain [Unknown]
